FAERS Safety Report 9759902 (Version 2)
Quarter: 2014Q1

REPORT INFORMATION
  Report Type: Spontaneous
  Country: US (occurrence: US)
  Receive Date: 20131216
  Receipt Date: 20140326
  Transmission Date: 20141002
  Serious: Yes (Other)
  Sender: FDA-Public Use
  Company Number: US-PFIZER INC-2013359900

PATIENT
  Age: 69 Year
  Sex: Female
  Weight: 113.38 kg

DRUGS (4)
  1. XELJANZ [Suspect]
     Indication: RHEUMATOID ARTHRITIS
     Dosage: 5 MG, 2X/DAY (TAKE 1 TABLET TWICE A DAY)
     Route: 048
     Dates: start: 201310, end: 201403
  2. CELEBREX [Concomitant]
     Dosage: 50 MG
  3. HYDROCODONE/IBUPROFEN [Concomitant]
     Dosage: UNK
  4. HYDROCODONE [Concomitant]
     Dosage: UNK

REACTIONS (2)
  - Breast cancer [Not Recovered/Not Resolved]
  - Diarrhoea [Unknown]
